FAERS Safety Report 15694005 (Version 2)
Quarter: 2018Q4

REPORT INFORMATION
  Report Type: Spontaneous
  Country: DK (occurrence: DK)
  Receive Date: 20181206
  Receipt Date: 20181217
  Transmission Date: 20190205
  Serious: Yes (Death, Other)
  Sender: FDA-Public Use
  Company Number: DK-AUROBINDO-AUR-APL-2018-058606

PATIENT
  Age: 56 Year
  Sex: Female

DRUGS (5)
  1. TRAMADOL HARD CAPSULES 50 MG [Suspect]
     Active Substance: TRAMADOL
     Indication: BACK PAIN
     Dosage: 150 MILLIGRAM, ONCE A DAY (STYRKE: 50 MG)
     Route: 048
     Dates: start: 20160329
  2. OLANZAPINE. [Suspect]
     Active Substance: OLANZAPINE
     Indication: PRODUCT USED FOR UNKNOWN INDICATION
     Dosage: UNK
     Route: 065
  3. IBUPROFEN. [Concomitant]
     Active Substance: IBUPROFEN
     Indication: PAIN
     Dosage: 3 DOSAGE FORM, ONCE A DAY (UKENDT DOSIS)
     Route: 048
  4. PANODIL [Concomitant]
     Active Substance: ACETAMINOPHEN
     Indication: PAIN
     Dosage: UNKNOWN DOSE AS NEEDED
     Route: 048
  5. CHLORZOXAZONE. [Concomitant]
     Active Substance: CHLORZOXAZONE
     Indication: PRODUCT USED FOR UNKNOWN INDICATION
     Dosage: 750 MILLIGRAM, DAILY (STYRKE: 250 MG.)
     Route: 048

REACTIONS (4)
  - Toxicity to various agents [Fatal]
  - Dizziness [Unknown]
  - Respiratory depression [Fatal]
  - Circulatory collapse [Fatal]

NARRATIVE: CASE EVENT DATE: 20160404
